FAERS Safety Report 8235523-0 (Version None)
Quarter: 2012Q1

REPORT INFORMATION
  Report Type: 
  Country: None (occurrence: None)
  Receive Date: 20120326
  Receipt Date: 20120321
  Transmission Date: 20120608
  Serious: Yes (Other)
  Sender: FDA-Public Use
  Company Number: US-FRI-1000029252

PATIENT
  Age: 85 Year
  Sex: Male

DRUGS (6)
  1. BYSTOLIC [Suspect]
     Dosage: 2.5 MG
     Route: 048
     Dates: start: 20110101
  2. FLOMAX [Concomitant]
  3. ASPIRIN [Concomitant]
     Dosage: 81 MG
     Route: 048
  4. FEXOFENADINE [Concomitant]
     Indication: SEASONAL ALLERGY
  5. VITAMINS (NOS) [Concomitant]
  6. DIPHENOXYLATE [Concomitant]
     Indication: DIARRHOEA

REACTIONS (1)
  - SUDDEN HEARING LOSS [None]
